FAERS Safety Report 7485695-0 (Version None)
Quarter: 2011Q2

REPORT INFORMATION
  Report Type: 
  Country: None (occurrence: None)
  Receive Date: 20110516
  Receipt Date: 20110516
  Transmission Date: 20111010
  Serious: Yes (Life-Threatening, Hospitalization)
  Sender: FDA-Public Use
  Company Number: None

PATIENT
  Age: 47 Year
  Sex: Female
  Weight: 72.5755 kg

DRUGS (1)
  1. LATUDA [Suspect]
     Indication: SCHIZOPHRENIA
     Dosage: 40MG ONCE DAILY ORALLY FOR 1 DAY ; 80MG ONCE DAILY FOR 2ND DAY
     Route: 048
     Dates: start: 20110415, end: 20110417

REACTIONS (3)
  - PYREXIA [None]
  - THROMBOCYTOPENIA [None]
  - RASH PRURITIC [None]
